FAERS Safety Report 12747809 (Version 1)
Quarter: 2016Q3

REPORT INFORMATION
  Report Type: Spontaneous
  Country: US (occurrence: US)
  Receive Date: 20160915
  Receipt Date: 20160915
  Transmission Date: 20161109
  Serious: No
  Sender: FDA-Public Use
  Company Number: US-JAZZ-2016-US-010056

PATIENT
  Sex: Female

DRUGS (27)
  1. XYREM [Suspect]
     Active Substance: SODIUM OXYBATE
     Indication: SOMNOLENCE
     Dosage: 2.25 G, BID
     Route: 048
     Dates: start: 201408, end: 201408
  2. WELLBUTRIN [Concomitant]
     Active Substance: BUPROPION HYDROCHLORIDE
  3. LYRICA [Concomitant]
     Active Substance: PREGABALIN
  4. LIDOCAINE. [Concomitant]
     Active Substance: LIDOCAINE
  5. MS CONTIN [Concomitant]
     Active Substance: MORPHINE SULFATE
  6. ABILIFY [Concomitant]
     Active Substance: ARIPIPRAZOLE
  7. TOPAMAX [Concomitant]
     Active Substance: TOPIRAMATE
  8. SULFASALAZINE. [Concomitant]
     Active Substance: SULFASALAZINE
  9. XYREM [Suspect]
     Active Substance: SODIUM OXYBATE
     Dosage: DOSE ADJUSTMENTS
     Route: 048
  10. PROVIGIL [Concomitant]
     Active Substance: MODAFINIL
  11. VALIUM [Concomitant]
     Active Substance: DIAZEPAM
  12. OPANA [Concomitant]
     Active Substance: OXYMORPHONE HYDROCHLORIDE
  13. PHENERGAN [Concomitant]
     Active Substance: PROMETHAZINE HYDROCHLORIDE
  14. DIAZEPAM. [Concomitant]
     Active Substance: DIAZEPAM
  15. NABUMETONE. [Concomitant]
     Active Substance: NABUMETONE
  16. XANAX [Concomitant]
     Active Substance: ALPRAZOLAM
  17. DOXEPIN [Concomitant]
     Active Substance: DOXEPIN
  18. TRAZODONE HYDROCHLORIDE. [Concomitant]
     Active Substance: TRAZODONE HYDROCHLORIDE
  19. BISOPROLOL FUMARATE AND HYDROCHLOROTHIAZIDE [Concomitant]
     Active Substance: BISOPROLOL FUMARATE\HYDROCHLOROTHIAZIDE
  20. LEXAPRO [Concomitant]
     Active Substance: ESCITALOPRAM OXALATE
  21. XYREM [Suspect]
     Active Substance: SODIUM OXYBATE
     Dosage: 4.5 G, BID
     Route: 048
     Dates: start: 201410
  22. OMEPRAZOLE. [Concomitant]
     Active Substance: OMEPRAZOLE
  23. VOLTAREN [Concomitant]
     Active Substance: DICLOFENAC SODIUM
  24. PREVACID [Concomitant]
     Active Substance: LANSOPRAZOLE
  25. PERCOCET [Concomitant]
     Active Substance: ACETAMINOPHEN\OXYCODONE HYDROCHLORIDE
  26. TOPIRAMATE. [Concomitant]
     Active Substance: TOPIRAMATE
  27. OXYCODONE AND ACETAMINOPHEN [Concomitant]
     Active Substance: ACETAMINOPHEN\OXYCODONE HYDROCHLORIDE

REACTIONS (1)
  - Blood pressure fluctuation [Unknown]
